FAERS Safety Report 5766789-4 (Version None)
Quarter: 2008Q2

REPORT INFORMATION
  Report Type: 
  Country: None (occurrence: None)
  Receive Date: 20080612
  Receipt Date: 20080602
  Transmission Date: 20081010
  Serious: No
  Sender: FDA-Public Use
  Company Number: US-ROCHE-568391

PATIENT
  Sex: Female

DRUGS (5)
  1. ISOTRETINOIN [Suspect]
     Indication: DRUG USE FOR UNKNOWN INDICATION
     Dosage: THE PATIENT WAS DISPENSED ACCUTANE 40 MG CAPSULES ON 14 DECEMBER 2007 AND 11 FEBRUARY 2008.
     Route: 065
  2. ISOTRETINOIN [Suspect]
     Route: 065
     Dates: start: 20080311, end: 20080602
  3. CLARAVIS [Suspect]
     Indication: DRUG USE FOR UNKNOWN INDICATION
     Route: 065
     Dates: start: 20080311, end: 20080602
  4. SOTRET [Suspect]
     Indication: DRUG USE FOR UNKNOWN INDICATION
     Dosage: THE PATIENT DISPENSED SOTRET 30MG CAPSULES ON 15 JANUARY 2008.
     Route: 065
  5. CONTRACEPTIVE PILL [Concomitant]

REACTIONS (2)
  - NO ADVERSE EVENT [None]
  - PREGNANCY [None]
